FAERS Safety Report 18112117 (Version 1)
Quarter: 2020Q3

REPORT INFORMATION
  Report Type: Spontaneous
  Country: US (occurrence: US)
  Receive Date: 20200805
  Receipt Date: 20200805
  Transmission Date: 20201103
  Serious: No
  Sender: FDA-Public Use
  Company Number: US-ACCORD-187522

PATIENT
  Age: 38 Year
  Sex: Female
  Weight: 72.57 kg

DRUGS (1)
  1. DALFAMPRIDINE ACCORD [Suspect]
     Active Substance: DALFAMPRIDINE
     Indication: PRODUCT USED FOR UNKNOWN INDICATION

REACTIONS (4)
  - Rash [Unknown]
  - Pruritus [Unknown]
  - Reaction to excipient [Unknown]
  - Discomfort [Unknown]
